FAERS Safety Report 9056430 (Version 1)
Quarter: 2013Q1

REPORT INFORMATION
  Report Type: Spontaneous
  Country: US (occurrence: US)
  Receive Date: 20130204
  Receipt Date: 20130204
  Transmission Date: 20140127
  Serious: Yes (Other)
  Sender: FDA-Public Use
  Company Number: US-ASTRAZENECA-2013SE05757

PATIENT
  Sex: Male

DRUGS (3)
  1. SYNAGIS [Suspect]
     Route: 030
     Dates: start: 201211
  2. PREDNISONE [Concomitant]
     Dosage: 5 MG/5 ML
  3. KEPPRA [Concomitant]
     Dosage: 100 MG/ ML
     Route: 048

REACTIONS (1)
  - Convulsion [Unknown]
